FAERS Safety Report 21207850 (Version 2)
Quarter: 2022Q3

REPORT INFORMATION
  Report Type: Spontaneous
  Country: GR (occurrence: GR)
  Receive Date: 20220812
  Receipt Date: 20220829
  Transmission Date: 20221027
  Serious: Yes (Death, Hospitalization)
  Sender: FDA-Public Use
  Company Number: GR-TEVA-2022-GR-2053164

PATIENT
  Sex: Male

DRUGS (4)
  1. QUETIAPINE [Interacting]
     Active Substance: QUETIAPINE
     Indication: Insomnia
     Dosage: 1 QUEPIN 25MG TABLET, THE NIGHT PRIOR
     Route: 048
     Dates: start: 20220701, end: 20220701
  2. PREGABALIN [Interacting]
     Active Substance: PREGABALIN
     Indication: Anxiety disorder
     Route: 048
     Dates: start: 202201
  3. VASTAREL [Concomitant]
     Active Substance: TRIMETAZIDINE DIHYDROCHLORIDE
     Indication: Product used for unknown indication
     Dates: start: 202201
  4. PALEXIA [Concomitant]
     Active Substance: TAPENTADOL HYDROCHLORIDE
     Indication: Pain
     Route: 065
     Dates: start: 202201

REACTIONS (5)
  - Infection [Fatal]
  - Somnolence [Recovered/Resolved]
  - Hypotension [Not Recovered/Not Resolved]
  - Drug interaction [Unknown]
  - Off label use [Unknown]

NARRATIVE: CASE EVENT DATE: 20220701
